FAERS Safety Report 8975679 (Version 1)
Quarter: 2012Q4

REPORT INFORMATION
  Report Type: 
  Country: DE (occurrence: DE)
  Receive Date: 20121219
  Receipt Date: 20121219
  Transmission Date: 20130627
  Serious: Yes (Other)
  Sender: FDA-Public Use
  Company Number: PHHY2012DE115713

PATIENT
  Age: 59 Year
  Sex: Female

DRUGS (3)
  1. EXFORGE HCT [Suspect]
     Dosage: 1 DF, UNK vals (160 mg, amlo 10 mg, hydr 12.5 mg)
     Dates: end: 201211
  2. THYROID THERAPY [Concomitant]
     Dates: start: 2002
  3. POTASSIUM [Concomitant]

REACTIONS (3)
  - Fall [Recovered/Resolved]
  - Muscular weakness [Recovering/Resolving]
  - Dizziness [Not Recovered/Not Resolved]
